FAERS Safety Report 7775056-9 (Version None)
Quarter: 2011Q3

REPORT INFORMATION
  Report Type: 
  Country: None (occurrence: None)
  Receive Date: 20110923
  Receipt Date: 20110912
  Transmission Date: 20111222
  Serious: Yes (Other)
  Sender: FDA-Public Use
  Company Number: CA-JNJFOC-20110906197

PATIENT
  Sex: Male
  Weight: 63.9 kg

DRUGS (4)
  1. PERCOCET [Concomitant]
     Route: 065
  2. ATENOLOL [Concomitant]
     Route: 065
  3. REMICADE [Suspect]
     Indication: CROHN'S DISEASE
     Route: 042
     Dates: start: 20110209
  4. REMICADE [Suspect]
     Dosage: 5TH INFUSION
     Route: 042
     Dates: start: 20110718

REACTIONS (3)
  - DRUG INEFFECTIVE [None]
  - FAECES DISCOLOURED [None]
  - FISTULA DISCHARGE [None]
